FAERS Safety Report 5808203-6 (Version None)
Quarter: 2008Q3

REPORT INFORMATION
  Report Type: 
  Country: None (occurrence: None)
  Receive Date: 20080711
  Receipt Date: 20080702
  Transmission Date: 20090109
  Serious: Yes (Congenital Anomaly)
  Sender: FDA-Public Use
  Company Number: UG-GILEAD-2008-0017172

PATIENT
  Weight: 4.3 kg

DRUGS (2)
  1. VIREAD [Suspect]
     Route: 064
     Dates: start: 20070604
  2. COMBIVIR [Concomitant]
     Route: 064
     Dates: start: 20070604

REACTIONS (1)
  - TALIPES [None]
